FAERS Safety Report 8333929-2 (Version None)
Quarter: 2012Q2

REPORT INFORMATION
  Report Type: 
  Country: None (occurrence: None)
  Receive Date: 20120503
  Receipt Date: 20110126
  Transmission Date: 20120825
  Serious: No
  Sender: FDA-Public Use
  Company Number: US-TEVA-2011000439

PATIENT
  Sex: Female

DRUGS (3)
  1. SEROQUEL XR [Concomitant]
  2. NUVIGIL [Suspect]
     Indication: SLEEP APNOEA SYNDROME
     Dosage: 150 MILLIGRAM;
     Route: 048
     Dates: start: 20110119
  3. LAMICTAL [Concomitant]

REACTIONS (1)
  - DRUG INEFFECTIVE [None]
